FAERS Safety Report 8409447 (Version 3)
Quarter: 2013Q2

REPORT INFORMATION
  Report Type: Spontaneous
  Country: US (occurrence: None)
  Receive Date: 20111227
  Receipt Date: 20120426
  Transmission Date: 20140414
  Serious: Yes (Other)
  Sender: FDA-Public Use
  Company Number: PHHY2011US28483

PATIENT
  Age: 58 Year
  Sex: Female

DRUGS (1)
  1. GILENYA [Suspect]
     Indication: RELAPSING-REMITTING MULTIPLE SCLEROSIS
     Dosage: 0.5MG, QD, ORAL
     Route: 048
     Dates: start: 201102, end: 201104

REACTIONS (8)
  - NAUSEA [None]
  - FATIGUE [None]
  - PAIN [None]
  - COUGH [None]
  - HEADACHE [None]
  - Multiple sclerosis relapse [None]
  - Drug ineffective [None]
  - Masked facies [None]
